FAERS Safety Report 13932302 (Version 2)
Quarter: 2017Q3

REPORT INFORMATION
  Report Type: Spontaneous
  Country: US (occurrence: US)
  Receive Date: 20170904
  Receipt Date: 20170919
  Transmission Date: 20171127
  Serious: No
  Sender: FDA-Public Use
  Company Number: US-PFIZER INC-2016005873

PATIENT
  Age: 65 Year
  Sex: Female
  Weight: 51 kg

DRUGS (5)
  1. LEVOXYL [Suspect]
     Active Substance: LEVOTHYROXINE SODIUM
     Indication: HYPOTHYROIDISM
     Dosage: UNK
     Dates: start: 20170801
  2. LEVOXYL [Suspect]
     Active Substance: LEVOTHYROXINE SODIUM
     Dosage: 50 UG, DAILY
  3. LEVOXYL [Suspect]
     Active Substance: LEVOTHYROXINE SODIUM
     Dosage: 75 UG, ALTERNATE DAY, (CURRENTLY TAKING ALTERNATING DOSES OF 50MCG ON EVEN DAYS AND 75MCG ODD DAYS)
  4. LEVOXYL [Suspect]
     Active Substance: LEVOTHYROXINE SODIUM
     Dosage: 75 UG, DAILY
  5. LEVOXYL [Suspect]
     Active Substance: LEVOTHYROXINE SODIUM
     Dosage: 50 UG, ALTERNATE DAY, (CURRENTLY TAKING ALTERNATING DOSES OF 50MCG ON EVEN DAYS AND 75MCG ODD DAYS)

REACTIONS (19)
  - Skin exfoliation [Not Recovered/Not Resolved]
  - Gastrointestinal disorder [Recovering/Resolving]
  - Feeling abnormal [Unknown]
  - Abdominal pain [Recovering/Resolving]
  - Throat irritation [Unknown]
  - Ear congestion [Unknown]
  - Condition aggravated [Unknown]
  - Rhinorrhoea [Unknown]
  - Skin disorder [Not Recovered/Not Resolved]
  - Sinus congestion [Unknown]
  - Headache [Unknown]
  - Sinus disorder [Not Recovered/Not Resolved]
  - Sneezing [Unknown]
  - Flatulence [Recovering/Resolving]
  - Blood thyroid stimulating hormone decreased [Unknown]
  - Diarrhoea [Recovering/Resolving]
  - Abdominal distension [Recovering/Resolving]
  - Cough [Not Recovered/Not Resolved]
  - Intellectual disability [Unknown]

NARRATIVE: CASE EVENT DATE: 201708
